FAERS Safety Report 4276920-8 (Version None)
Quarter: 2004Q1

REPORT INFORMATION
  Report Type: 
  Country: None (occurrence: None)
  Receive Date: 20040120
  Receipt Date: 20040108
  Transmission Date: 20041129
  Serious: Yes (Disabling)
  Sender: FDA-Public Use
  Company Number: 04P-087-0246842-00

PATIENT
  Age: 19 Year
  Sex: Female

DRUGS (4)
  1. BIAXIN [Suspect]
     Dosage: PER ORAL
     Route: 048
     Dates: start: 20030101
  2. LOXOPROFEN SODIUM [Suspect]
     Dosage: PER ORAL
     Route: 048
     Dates: start: 20030101
  3. REBAMIPIDE [Suspect]
     Dosage: PER ORAL
     Route: 048
     Dates: start: 20030101
  4. ANTIBIOTICS RESISTANT LACTIC ACID BACTERIA [Suspect]
     Dosage: PER ORAL
     Route: 048
     Dates: start: 20030101

REACTIONS (1)
  - ABASIA [None]
